FAERS Safety Report 9443776 (Version 1)
Quarter: 2013Q3

REPORT INFORMATION
  Report Type: Report from Study
  Country: ZA (occurrence: ZA)
  Receive Date: 20130731
  Receipt Date: 20130731
  Transmission Date: 20140515
  Serious: Yes (Death)
  Sender: FDA-Public Use
  Company Number: ZA-ROCHE-1254948

PATIENT
  Age: 65 Year
  Sex: Female

DRUGS (3)
  1. MIRCERA [Suspect]
     Indication: PRODUCT USED FOR UNKNOWN INDICATION
     Route: 058
     Dates: start: 20111005, end: 201302
  2. MIRCERA [Suspect]
     Route: 058
     Dates: start: 20100201
  3. VENOFER [Concomitant]

REACTIONS (1)
  - Death [Fatal]
